FAERS Safety Report 8468738-7 (Version None)
Quarter: 2012Q2

REPORT INFORMATION
  Report Type: 
  Country: None (occurrence: None)
  Receive Date: 20120626
  Receipt Date: 20120611
  Transmission Date: 20120825
  Serious: Yes (Death, Other)
  Sender: FDA-Public Use
  Company Number: FR-ROCHE-1077267

PATIENT

DRUGS (2)
  1. PACLITAXEL [Suspect]
     Indication: NON-SMALL CELL LUNG CANCER METASTATIC
     Dosage: ON DAYS 1, 8, 15
  2. AVASTIN [Suspect]
     Indication: NON-SMALL CELL LUNG CANCER METASTATIC
     Dosage: ON DAY 1

REACTIONS (7)
  - NEUTROPENIA [None]
  - NEUROPATHY PERIPHERAL [None]
  - PULMONARY HAEMORRHAGE [None]
  - INFECTION [None]
  - INTESTINAL PERFORATION [None]
  - ONYCHOLYSIS [None]
  - HYPERTENSION [None]
